FAERS Safety Report 7302358-2 (Version None)
Quarter: 2011Q1

REPORT INFORMATION
  Report Type: 
  Country: None (occurrence: None)
  Receive Date: 20110218
  Receipt Date: 20110216
  Transmission Date: 20110831
  Serious: Yes (Other)
  Sender: FDA-Public Use
  Company Number: US-ABBOTT-11P-163-0701397-00

PATIENT
  Sex: Female
  Weight: 61.29 kg

DRUGS (6)
  1. HUMIRA [Suspect]
     Indication: RHEUMATOID ARTHRITIS
     Dosage: HUMIRA PRE-FILLED SYRINGES
     Route: 058
     Dates: start: 20101101
  2. HUMIRA [Suspect]
     Dosage: 18 DOSES TOTAL; HUMIRA PEN
     Route: 058
     Dates: start: 20090601, end: 20100201
  3. TYLENOL [Concomitant]
     Indication: PRODUCT USED FOR UNKNOWN INDICATION
  4. LISINOPRIL [Suspect]
     Indication: HYPERTENSION
     Dates: start: 20101001, end: 20110101
  5. SYNTHROID [Concomitant]
     Indication: HYPOTHYROIDISM
  6. NAPROXEN [Concomitant]
     Indication: RHEUMATOID ARTHRITIS

REACTIONS (13)
  - DRUG INEFFECTIVE [None]
  - MALAISE [None]
  - ASTHENIA [None]
  - PAIN IN EXTREMITY [None]
  - BASAL CELL CARCINOMA [None]
  - MOBILITY DECREASED [None]
  - FEELING COLD [None]
  - COUGH [None]
  - DIZZINESS [None]
  - CARPAL TUNNEL SYNDROME [None]
  - NASAL CONGESTION [None]
  - MELANOCYTIC NAEVUS [None]
  - HYPOAESTHESIA [None]
